FAERS Safety Report 19190277 (Version 3)
Quarter: 2021Q2

REPORT INFORMATION
  Report Type: Spontaneous
  Country: US (occurrence: US)
  Receive Date: 20210428
  Receipt Date: 20210505
  Transmission Date: 20210717
  Serious: No
  Sender: FDA-Public Use
  Company Number: NVSC2021US094073

PATIENT
  Sex: Male

DRUGS (2)
  1. MEKINIST [Suspect]
     Active Substance: TRAMETINIB DIMETHYL SULFOXIDE
     Indication: HISTIOCYTOSIS
     Dosage: 1 MG, QD
     Route: 048
     Dates: start: 20210330
  2. TAFINLAR [Suspect]
     Active Substance: DABRAFENIB MESYLATE
     Indication: HISTIOCYTOSIS
     Dosage: 50 MG, BID
     Route: 048
     Dates: start: 20210330

REACTIONS (2)
  - Acrochordon [Unknown]
  - Product use in unapproved indication [Unknown]
